FAERS Safety Report 17634283 (Version 2)
Quarter: 2020Q2

REPORT INFORMATION
  Report Type: Report from Study
  Country: JP (occurrence: JP)
  Receive Date: 20200406
  Receipt Date: 20200409
  Transmission Date: 20200713
  Serious: Yes (Hospitalization)
  Sender: FDA-Public Use
  Company Number: JP-EISAI MEDICAL RESEARCH-EC-2020-072742

PATIENT
  Age: 65 Year
  Sex: Male
  Weight: 60 kg

DRUGS (7)
  1. DEXALTIN [Concomitant]
     Active Substance: DEXAMETHASONE
  2. NEUTROGIN [Concomitant]
     Active Substance: LENOGRASTIM
  3. CALONAL [Concomitant]
     Active Substance: ACETAMINOPHEN
  4. ERIBULIN [Suspect]
     Active Substance: ERIBULIN
     Indication: GASTRIC CANCER
     Route: 042
     Dates: start: 20200323
  5. LEVOFLOXACIN HEMIHYDRATE [Concomitant]
     Active Substance: LEVOFLOXACIN
  6. RESTAMIN [Concomitant]
     Active Substance: DIPHENHYDRAMINE
  7. ANTEBATE:OINTMENT [Concomitant]

REACTIONS (1)
  - Febrile neutropenia [Recovered/Resolved]

NARRATIVE: CASE EVENT DATE: 20200401
